FAERS Safety Report 16625456 (Version 3)
Quarter: 2019Q3

REPORT INFORMATION
  Report Type: Spontaneous
  Country: US (occurrence: US)
  Receive Date: 20190724
  Receipt Date: 20190910
  Transmission Date: 20191004
  Serious: No
  Sender: FDA-Public Use
  Company Number: US-PFIZER INC-2019315961

PATIENT
  Age: 58 Year
  Sex: Female
  Weight: 70.3 kg

DRUGS (8)
  1. IMMUNE COMPLEX [Concomitant]
     Dosage: 1000 UG, UNK
  2. VITAMIN B12 [Concomitant]
     Active Substance: CYANOCOBALAMIN
     Dosage: 1000 UG, DAILY
  3. MILK THISTLE [Concomitant]
     Active Substance: DIETARY SUPPLEMENT\HERBALS\MILK THISTLE
     Dosage: 350 MG, DAILY
  4. LORAZEPAM. [Suspect]
     Active Substance: LORAZEPAM
     Indication: SLEEP DISORDER
     Dosage: UNK
     Dates: end: 20181214
  5. ATIVAN [Suspect]
     Active Substance: LORAZEPAM
     Indication: SLEEP DISORDER
     Dosage: UNK
     Dates: end: 20181214
  6. CALCEMIN [Concomitant]
     Active Substance: BORON\PREVITAMIN D3\ZINC
     Dosage: 3 G, SPEED OUT DAILY
  7. KETOCONAZOLE. [Concomitant]
     Active Substance: KETOCONAZOLE
     Dosage: UNK
  8. VITAMIN D3 [Concomitant]
     Active Substance: CHOLECALCIFEROL
     Dosage: 8000 IU, DAILY

REACTIONS (3)
  - Arthropathy [Not Recovered/Not Resolved]
  - Alopecia [Recovered/Resolved]
  - Joint noise [Not Recovered/Not Resolved]
